FAERS Safety Report 9450505 (Version 1)
Quarter: 2013Q3

REPORT INFORMATION
  Report Type: Report from Study
  Country: DE (occurrence: DE)
  Receive Date: 20130809
  Receipt Date: 20130809
  Transmission Date: 20140515
  Serious: Yes (Hospitalization, Other)
  Sender: FDA-Public Use
  Company Number: DE-ABBOTT-13P-062-1128910-00

PATIENT
  Age: 58 Year
  Sex: Male

DRUGS (5)
  1. HUMIRA [Suspect]
     Indication: RHEUMATOID ARTHRITIS
     Route: 058
     Dates: start: 20090507
  2. METHOTREXATE [Concomitant]
     Indication: RHEUMATOID ARTHRITIS
     Dates: end: 20100510
  3. METHOTREXATE [Concomitant]
     Dates: start: 20100510, end: 20111215
  4. METHOTREXATE [Concomitant]
     Dates: start: 20111215, end: 20121106
  5. METHOTREXATE [Concomitant]
     Dates: start: 20121106

REACTIONS (4)
  - Atrioventricular block complete [Recovered/Resolved]
  - Atrial fibrillation [Recovered/Resolved]
  - Pyrexia [Recovered/Resolved]
  - Hypertensive heart disease [Unknown]
